FAERS Safety Report 19990157 (Version 1)
Quarter: 2021Q4

REPORT INFORMATION
  Report Type: Spontaneous
  Country: US (occurrence: US)
  Receive Date: 20211023
  Receipt Date: 20211023
  Transmission Date: 20220303
  Serious: No
  Sender: FDA-Public Use
  Company Number: None

PATIENT
  Sex: Male
  Weight: 55.35 kg

DRUGS (7)
  1. CAPECITABINE [Suspect]
     Active Substance: CAPECITABINE
     Indication: Colon cancer
     Dosage: ?          OTHER FREQUENCY:BID 14/21 DAYS;
     Route: 048
     Dates: start: 20210624
  2. AMLODIPINE [Concomitant]
     Active Substance: AMLODIPINE BESYLATE
  3. FOLIC ACID [Concomitant]
     Active Substance: FOLIC ACID
  4. HYDROXYUREA [Concomitant]
     Active Substance: HYDROXYUREA
  5. Tab-A-Vite [Concomitant]
  6. TAMSULOSIN [Concomitant]
     Active Substance: TAMSULOSIN
  7. VITAMIN D3 [Concomitant]
     Active Substance: CHOLECALCIFEROL

REACTIONS (1)
  - Asthenia [None]
